FAERS Safety Report 17836264 (Version 1)
Quarter: 2020Q2

REPORT INFORMATION
  Report Type: Spontaneous
  Country: US (occurrence: US)
  Receive Date: 20200528
  Receipt Date: 20200528
  Transmission Date: 20200714
  Serious: No
  Sender: FDA-Public Use
  Company Number: US-RARE DISEASE THERAPEUTICS, INC.-2084280

PATIENT
  Sex: Male
  Weight: 91.8 kg

DRUGS (6)
  1. ANAVIP [Suspect]
     Active Substance: PIT VIPER (CROTALINAE) IMMUNE GLOBULIN ANTIVENIN (EQUINE)
     Indication: SNAKE BITE
     Route: 042
     Dates: start: 20200517
  2. ALBUTEROL MDI [Concomitant]
     Active Substance: ALBUTEROL
  3. NORVASC [Concomitant]
     Active Substance: AMLODIPINE BESYLATE
     Route: 048
  4. FAMOTIDINE. [Concomitant]
     Active Substance: FAMOTIDINE
     Route: 048
  5. MORPHINE [Concomitant]
     Active Substance: MORPHINE
     Route: 042
  6. HYDROCODONE BITARTRATE AND ACETAMINOPHEN [Concomitant]
     Active Substance: ACETAMINOPHEN\HYDROCODONE BITARTRATE
     Route: 048

REACTIONS (5)
  - Dyspnoea [Unknown]
  - Rash [Recovered/Resolved]
  - Infusion related reaction [Unknown]
  - Swelling [Recovered/Resolved]
  - Pruritus [Unknown]
